FAERS Safety Report 6289272-9 (Version None)
Quarter: 2009Q3

REPORT INFORMATION
  Report Type: 
  Country: None (occurrence: None)
  Receive Date: 20090730
  Receipt Date: 20070502
  Transmission Date: 20100115
  Serious: Yes (Other)
  Sender: FDA-Public Use
  Company Number: US-ASTRAZENECA-2006UW08165

PATIENT
  Age: 39 Year
  Sex: Male
  Weight: 117 kg

DRUGS (32)
  1. SEROQUEL [Suspect]
     Indication: SLEEP DISORDER
     Dosage: 300-50- MG PO
     Dates: start: 19970101
  2. SEROQUEL [Suspect]
     Indication: BIPOLAR DISORDER
     Dosage: 300-50- MG PO
     Dates: start: 19970101
  3. SEROQUEL [Suspect]
     Indication: DEPRESSION
     Dosage: 300-50- MG PO
     Dates: start: 19970101
  4. SEROQUEL [Suspect]
     Dosage: 100 MG-300 MG
     Route: 048
     Dates: start: 20040216
  5. SEROQUEL [Suspect]
     Dosage: 100 MG-300 MG
     Route: 048
     Dates: start: 20040216
  6. SEROQUEL [Suspect]
     Dosage: 100 MG-300 MG
     Route: 048
     Dates: start: 20040216
  7. ZYPREXA [Suspect]
     Dates: start: 20030101, end: 20050101
  8. LITHIUM [Suspect]
     Dates: start: 20030101, end: 20050101
  9. RISPERDAL [Concomitant]
  10. DEXATRIM [Concomitant]
     Dates: start: 20020101, end: 20050101
  11. ENALAPRIL MALEATE [Concomitant]
  12. IMDUR [Concomitant]
  13. LANTUS [Concomitant]
  14. LYRICA [Concomitant]
  15. NEURONTIN [Concomitant]
  16. METOPROLOL TARTRATE [Concomitant]
  17. SINGULAIR [Concomitant]
  18. TRICOR [Concomitant]
  19. ACTOS [Concomitant]
  20. TRAMADOL [Concomitant]
  21. LAMICTAL [Concomitant]
  22. CLONIDINE [Concomitant]
  23. AMITRIPTYLINE HCL [Concomitant]
  24. DEPAKOTE [Concomitant]
  25. PROZAC [Concomitant]
  26. LEXAPRO [Concomitant]
  27. VALPROIC ACID [Concomitant]
  28. WELLBUTRIN [Concomitant]
  29. LIPITOR [Concomitant]
  30. LOPID [Concomitant]
  31. NITROSTAT [Concomitant]
  32. METFORMIN [Concomitant]

REACTIONS (9)
  - DIABETES MELLITUS [None]
  - DIABETES MELLITUS INADEQUATE CONTROL [None]
  - DIABETIC COMA [None]
  - DIABETIC KETOACIDOSIS [None]
  - DIABETIC NEUROPATHY [None]
  - DIABETIC RETINOPATHY [None]
  - NEUROLEPTIC MALIGNANT SYNDROME [None]
  - RESTLESS LEGS SYNDROME [None]
  - TARDIVE DYSKINESIA [None]
